FAERS Safety Report 5874135-0 (Version None)
Quarter: 2008Q3

REPORT INFORMATION
  Report Type: 
  Country: None (occurrence: None)
  Receive Date: 20080905
  Receipt Date: 20080905
  Transmission Date: 20090109
  Serious: Yes (Hospitalization)
  Sender: FDA-Public Use
  Company Number: None

PATIENT
  Age: 56 Year
  Sex: Male
  Weight: 117.9352 kg

DRUGS (1)
  1. HIBICLENS [Suspect]
     Indication: SURGERY
     Dosage: APPLY THE MINIMUM AMOUNT
     Dates: start: 20080806, end: 20080807

REACTIONS (4)
  - CATHETER SITE ERYTHEMA [None]
  - CAUSTIC INJURY [None]
  - ERYTHEMA [None]
  - SKIN EXFOLIATION [None]
